FAERS Safety Report 22254640 (Version 1)
Quarter: 2023Q2

REPORT INFORMATION
  Report Type: Other
  Country: US (occurrence: None)
  Receive Date: 20230426
  Receipt Date: 20230426
  Transmission Date: 20230722
  Serious: Yes (Hospitalization)
  Sender: FDA-Public Use
  Company Number: US-ROCHE-3334757

PATIENT
  Age: 7 Year
  Sex: Female
  Weight: 25.7 kg

DRUGS (1)
  1. EVRYSDI [Suspect]
     Active Substance: RISDIPLAM
     Indication: Spinal muscular atrophy
     Dosage: 6.6ML
     Route: 065

REACTIONS (4)
  - Vomiting [Unknown]
  - Constipation [Unknown]
  - Dehydration [Unknown]
  - Metapneumovirus infection [Unknown]
